FAERS Safety Report 6867950-8 (Version None)
Quarter: 2010Q3

REPORT INFORMATION
  Report Type: 
  Country: None (occurrence: None)
  Receive Date: 20100722
  Receipt Date: 20081230
  Transmission Date: 20110219
  Serious: Yes (Other)
  Sender: FDA-Public Use
  Company Number: US-PFIZER INC-2008040535

PATIENT
  Sex: Female
  Weight: 99.773 kg

DRUGS (9)
  1. CHANTIX [Suspect]
     Indication: SMOKING CESSATION THERAPY
     Dosage: 0.5 MG, 2X/DAY
     Dates: start: 20080501, end: 20080501
  2. NEURONTIN [Concomitant]
  3. HYDRALAZINE HCL [Concomitant]
  4. LISINOPRIL [Concomitant]
  5. DILTIAZEM HYDROCHLORIDE [Concomitant]
  6. PLAVIX [Concomitant]
  7. PRILOSEC [Concomitant]
  8. ACETYLSALICYLIC ACID [Concomitant]
  9. DRUG, UNSPECIFIED [Concomitant]

REACTIONS (4)
  - ASTHENIA [None]
  - DEPRESSION [None]
  - MENTAL IMPAIRMENT [None]
  - SUICIDAL IDEATION [None]
